FAERS Safety Report 4615313-8 (Version None)
Quarter: 2005Q1

REPORT INFORMATION
  Report Type: 
  Country: None (occurrence: None)
  Receive Date: 20050317
  Receipt Date: 20050308
  Transmission Date: 20050727
  Serious: Yes (Other)
  Sender: FDA-Public Use
  Company Number: CA-2005-003549

PATIENT
  Age: 62 Year
  Sex: Female

DRUGS (5)
  1. BETASERON [Suspect]
     Indication: RELAPSING-REMITTING MULTIPLE SCLEROSIS
     Dosage: 8 MIU, EVERY 2D, SUBCUTANEOUS
     Route: 058
     Dates: start: 19980114
  2. SYMMETREL [Concomitant]
  3. SOTALOL HCL [Concomitant]
  4. TAGAMET [Concomitant]
  5. LORAZEPAM [Concomitant]

REACTIONS (6)
  - BLOOD PRESSURE INCREASED [None]
  - HEADACHE [None]
  - HEART RATE INCREASED [None]
  - MACULAR DEGENERATION [None]
  - RHINORRHOEA [None]
  - SINUS CONGESTION [None]
